FAERS Safety Report 7771164-7 (Version None)
Quarter: 2011Q3

REPORT INFORMATION
  Report Type: 
  Country: None (occurrence: None)
  Receive Date: 20110922
  Receipt Date: 20101129
  Transmission Date: 20111222
  Serious: No
  Sender: FDA-Public Use
  Company Number: US-ASTRAZENECA-2010SE56532

PATIENT
  Age: 49 Year
  Sex: Female

DRUGS (6)
  1. SEROQUEL [Suspect]
     Indication: SLEEP DISORDER
     Dosage: 100 MG TO 150 MG AT BEDTIME DEPENDING ON HER SYMPTOMS
     Route: 048
  2. KLONOPIN [Concomitant]
  3. CELEXA [Concomitant]
  4. RESTERIL [Concomitant]
  5. SEROQUEL [Suspect]
     Indication: DEPRESSION
     Dosage: 100 MG TO 150 MG AT BEDTIME DEPENDING ON HER SYMPTOMS
     Route: 048
  6. SEROQUEL [Suspect]
     Indication: BIPOLAR II DISORDER
     Dosage: 100 MG TO 150 MG AT BEDTIME DEPENDING ON HER SYMPTOMS
     Route: 048

REACTIONS (5)
  - VITAMIN D DECREASED [None]
  - OEDEMA [None]
  - HYPOPROTEINAEMIA [None]
  - ACUTE STRESS DISORDER [None]
  - WEIGHT INCREASED [None]
